FAERS Safety Report 16426366 (Version 1)
Quarter: 2019Q3

REPORT INFORMATION
  Report Type: Spontaneous
  Country: US (occurrence: US)
  Receive Date: 20190612
  Receipt Date: 20190612
  Transmission Date: 20191004
  Serious: Yes (Other)
  Sender: FDA-Public Use
  Company Number: None

PATIENT
  Age: 60 Year
  Sex: Female
  Weight: 62.1 kg

DRUGS (1)
  1. TORRENT ZOLPIDEM 10 MG [Suspect]
     Active Substance: ZOLPIDEM TARTRATE
     Indication: INSOMNIA
     Dosage: ?          QUANTITY:1 TABLET(S);?
     Route: 048
     Dates: start: 20190603, end: 20190610

REACTIONS (4)
  - Product contamination [None]
  - Pharyngeal swelling [None]
  - Product substitution issue [None]
  - Pharyngitis streptococcal [None]

NARRATIVE: CASE EVENT DATE: 20190603
